FAERS Safety Report 5087798-7 (Version None)
Quarter: 2006Q3

REPORT INFORMATION
  Report Type: 
  Country: None (occurrence: None)
  Receive Date: 20060821
  Receipt Date: 20060821
  Transmission Date: 20061208
  Serious: No
  Sender: FDA-Public Use
  Company Number: None

PATIENT
  Age: 45 Year
  Sex: Male
  Weight: 86.1834 kg

DRUGS (11)
  1. OMNISCAN [Suspect]
     Indication: HEPATIC CIRRHOSIS
     Dosage: 40 CC   ONE TIME   IV
     Route: 042
     Dates: start: 20021023, end: 20021023
  2. OMNISCAN [Suspect]
     Indication: HEPATIC NEOPLASM MALIGNANT
     Dosage: 40 CC   ONE TIME   IV
     Route: 042
     Dates: start: 20021023, end: 20021023
  3. CLOTRIMAZOLE [Concomitant]
  4. VALGANCYCLOVIR [Concomitant]
  5. ZYVOX [Concomitant]
  6. SEPTRA [Concomitant]
  7. PEPCID [Concomitant]
  8. PREDNISONE TAB [Concomitant]
  9. PROGRAFF [Concomitant]
  10. ACTIGALL [Concomitant]
  11. LOVENOX [Concomitant]

REACTIONS (4)
  - ASTHENIA [None]
  - MYOPATHY [None]
  - OEDEMA PERIPHERAL [None]
  - SKIN INDURATION [None]
